FAERS Safety Report 11309428 (Version 3)
Quarter: 2015Q4

REPORT INFORMATION
  Report Type: Spontaneous
  Country: JP (occurrence: JP)
  Receive Date: 20150724
  Receipt Date: 20151223
  Transmission Date: 20160304
  Serious: Yes (Death, Other)
  Sender: FDA-Public Use
  Company Number: JP-TEVA-579873ISR

PATIENT
  Age: 81 Year
  Sex: Male
  Weight: 59 kg

DRUGS (26)
  1. THYRADIN [Concomitant]
     Active Substance: LEVOTHYROXINE
     Dosage: 100 MICROGRAM DAILY;
     Route: 048
     Dates: end: 20150529
  2. RINDERON V [Concomitant]
     Active Substance: BETAMETHASONE VALERATE
     Indication: PALLIATIVE CARE
     Dosage: 2 MILLIGRAM DAILY;
     Route: 041
     Dates: start: 20150607, end: 20150629
  3. E-FEN BUCCAL [Suspect]
     Active Substance: FENTANYL CITRATE
     Dosage: 100 MICROGRAM DAILY;
     Route: 002
     Dates: start: 20150526, end: 20150625
  4. E-FEN BUCCAL [Suspect]
     Active Substance: FENTANYL CITRATE
     Dosage: 0 MICROGRAM - 400  MICROGRAM
     Route: 002
     Dates: start: 20150625, end: 20150628
  5. BAYASPIRIN [Concomitant]
     Active Substance: ASPIRIN
     Indication: HYPERTENSION
     Dosage: 100 MILLIGRAM DAILY;
     Route: 048
     Dates: end: 20150529
  6. ALLEGRA [Concomitant]
     Active Substance: FEXOFENADINE HYDROCHLORIDE
     Indication: ECZEMA
     Dosage: 120 MILLIGRAM DAILY;
     Route: 048
     Dates: end: 20150529
  7. ELNEOPA NO.2 [Concomitant]
     Active Substance: AMINO ACIDS\CARBOHYDRATES\ELECTROLYTES NOS\VITAMINS
     Indication: PHARYNGITIS
     Dosage: 1000 ML DAILY;
     Route: 041
     Dates: start: 20150613, end: 20150629
  8. FENTOS [Concomitant]
     Active Substance: FENTANYL
     Indication: CANCER PAIN
     Dosage: 3 MILLIGRAM DAILY;
     Route: 062
     Dates: start: 20150422, end: 20150524
  9. MELOXICAM. [Concomitant]
     Active Substance: MELOXICAM
     Indication: CANCER PAIN
     Dosage: 10 MILLIGRAM DAILY;
     Route: 048
     Dates: start: 20150519, end: 20150529
  10. FENTOS [Concomitant]
     Active Substance: FENTANYL
     Dosage: 2 MILLIGRAM DAILY;
     Route: 062
     Dates: start: 20150525, end: 20150622
  11. ACELIO [Concomitant]
     Active Substance: ACETAMINOPHEN
     Indication: CANCER PAIN
     Route: 042
     Dates: start: 20150624, end: 20150628
  12. E-FEN BUCCAL [Suspect]
     Active Substance: FENTANYL CITRATE
     Indication: BREAKTHROUGH PAIN
     Dosage: 100 MICROGRAM DAILY;
     Route: 002
     Dates: start: 20150518, end: 20150519
  13. EPERISONE HYDROCHLORIDE [Concomitant]
     Active Substance: EPERISONE HYDROCHLORIDE
     Indication: GOUT
     Dosage: 150 MILLIGRAM DAILY;
     Route: 048
     Dates: end: 20150521
  14. FEBURIC [Concomitant]
     Active Substance: FEBUXOSTAT
     Indication: GOUT
     Dosage: 10 MILLIGRAM DAILY;
     Route: 048
     Dates: end: 20150529
  15. SPHERICAL CARBON ADSORBENT [Concomitant]
     Indication: CHRONIC KIDNEY DISEASE
     Dosage: 6 GRAM DAILY;
     Route: 048
     Dates: end: 20150521
  16. FESIN [Concomitant]
     Active Substance: IRON SUCROSE
     Indication: IRON DEFICIENCY ANAEMIA
     Dosage: 40 MILLIGRAM DAILY;
     Route: 042
     Dates: start: 20150618, end: 20150629
  17. NO DRUG NAME [Concomitant]
  18. E-FEN BUCCAL [Suspect]
     Active Substance: FENTANYL CITRATE
     Dosage: 0 MICROGRAM - 400  MICROGRAM
     Route: 002
     Dates: start: 20150625, end: 20150628
  19. FENTOS [Concomitant]
     Active Substance: FENTANYL
     Dosage: 4 MILLIGRAM DAILY;
     Route: 062
     Dates: start: 20150625, end: 20150629
  20. GLIMEPIRIDE. [Concomitant]
     Active Substance: GLIMEPIRIDE
     Indication: DIABETES MELLITUS
     Dosage: 1 MILLIGRAM DAILY;
     Route: 048
     Dates: end: 20150529
  21. MEROPEN [Concomitant]
     Active Substance: MEROPENEM
     Indication: PHARYNGITIS
     Dosage: 2 GRAM DAILY;
     Route: 041
     Dates: start: 20150604, end: 20150617
  22. INTRALIPOS [Concomitant]
     Active Substance: SOYBEAN OIL
     Indication: PHARYNGITIS
     Dosage: 250 ML DAILY;
     Route: 041
     Dates: start: 20150614, end: 20150629
  23. FENTOS [Concomitant]
     Active Substance: FENTANYL
     Dosage: 3 MILLIGRAM DAILY;
     Route: 062
     Dates: start: 20150622, end: 20150625
  24. MAGLAX [Concomitant]
     Active Substance: MAGNESIUM OXIDE
     Indication: CONSTIPATION
     Dosage: 2 GRAM DAILY;
     Route: 048
     Dates: end: 20150529
  25. LEVOFLOXACIN HEMIHYDRATE [Concomitant]
     Active Substance: LEVOFLOXACIN
     Indication: PHARYNGITIS
     Dosage: 500 MILLIGRAM DAILY;
     Route: 048
     Dates: start: 20150520, end: 20150526
  26. SODIUM RABEPRAZOLE [Concomitant]
     Active Substance: RABEPRAZOLE SODIUM
     Indication: PROPHYLAXIS
     Dosage: 10 MILLIGRAM DAILY;
     Route: 048
     Dates: end: 20150529

REACTIONS (4)
  - Thyroid cancer [Fatal]
  - Nausea [Recovering/Resolving]
  - Atrial fibrillation [Recovering/Resolving]
  - Iron deficiency anaemia [Not Recovered/Not Resolved]

NARRATIVE: CASE EVENT DATE: 20150519
